APPROVED DRUG PRODUCT: HEXADROL
Active Ingredient: DEXAMETHASONE
Strength: 0.75MG
Dosage Form/Route: TABLET;ORAL
Application: N012675 | Product #007
Applicant: ASPEN GLOBAL INC
Approved: Approved Prior to Jan 1, 1982 | RLD: No | RS: No | Type: DISCN